FAERS Safety Report 6165977-5 (Version None)
Quarter: 2009Q2

REPORT INFORMATION
  Report Type: 
  Country: None (occurrence: None)
  Receive Date: 20090422
  Receipt Date: 20090415
  Transmission Date: 20091009
  Serious: Yes (Other)
  Sender: FDA-Public Use
  Company Number: JHP200900112

PATIENT
  Age: 46 Year
  Sex: Female

DRUGS (8)
  1. EPINEPHRINE [Suspect]
     Indication: STATUS ASTHMATICUS
  2. KETALAR [Suspect]
     Indication: STATUS ASTHMATICUS
  3. METHLPREDNISOLONE [Concomitant]
  4. IPRATROPIUM BROMIDE [Concomitant]
  5. ALBUTEROL [Concomitant]
  6. PROPOFOL [Concomitant]
  7. MIDAZOLAM HCL [Concomitant]
  8. CISATRACURIUM [Concomitant]

REACTIONS (1)
  - STRESS CARDIOMYOPATHY [None]
